FAERS Safety Report 24424533 (Version 1)
Quarter: 2024Q4

REPORT INFORMATION
  Report Type: Spontaneous
  Country: US (occurrence: US)
  Receive Date: 20241010
  Receipt Date: 20241010
  Transmission Date: 20250115
  Serious: No
  Sender: INCYTE
  Company Number: US-INCYTE CORPORATION-2024IN010509

PATIENT

DRUGS (2)
  1. JAKAFI [Suspect]
     Active Substance: RUXOLITINIB
     Indication: Myelofibrosis
     Dosage: 15 MILLIGRAM, QD
     Route: 048
     Dates: start: 202311
  2. OFEV [Concomitant]
     Active Substance: NINTEDANIB
     Indication: Pulmonary fibrosis
     Dosage: UNK
     Route: 065

REACTIONS (1)
  - Eczema [Unknown]
